FAERS Safety Report 5678298-1 (Version None)
Quarter: 2008Q1

REPORT INFORMATION
  Report Type: 
  Country: None (occurrence: None)
  Receive Date: 20080320
  Receipt Date: 20080313
  Transmission Date: 20080703
  Serious: Yes (Other)
  Sender: FDA-Public Use
  Company Number: 2008006419

PATIENT
  Age: 8 Year
  Sex: Male

DRUGS (1)
  1. CETIRIZINE HYDROCHLORIDE [Suspect]
     Indication: HYPERSENSITIVITY
     Dosage: 2 TEASPONS, ONCE, ORAL
     Route: 048
     Dates: start: 20030101, end: 20080311

REACTIONS (1)
  - DYSPHEMIA [None]
